FAERS Safety Report 25973928 (Version 1)
Quarter: 2025Q4

REPORT INFORMATION
  Report Type: Spontaneous
  Country: CN (occurrence: CN)
  Receive Date: 20251029
  Receipt Date: 20251029
  Transmission Date: 20260117
  Serious: Yes (Hospitalization)
  Sender: ROCHE
  Company Number: CN-CHEPLA-2025012180

PATIENT
  Age: 29 Year
  Sex: Female
  Weight: 48 kg

DRUGS (8)
  1. BEVACIZUMAB [Suspect]
     Active Substance: BEVACIZUMAB
     Indication: Ovarian cancer
     Dosage: APPROVAL NO. GYZZ SJ20170035
     Route: 042
     Dates: start: 20250926, end: 20250926
  2. BEVACIZUMAB [Suspect]
     Active Substance: BEVACIZUMAB
     Indication: Neoplasm
  3. XELODA [Suspect]
     Active Substance: CAPECITABINE
     Indication: Ovarian cancer
     Dosage: APPROVAL NO. GYZZ H20073024, 1000 MG TWICE DAILY
     Route: 048
     Dates: start: 20250926, end: 20250926
  4. XELODA [Suspect]
     Active Substance: CAPECITABINE
     Indication: Neoplasm
  5. TISLELIZUMAB [Suspect]
     Active Substance: TISLELIZUMAB
     Indication: Ovarian cancer
     Dosage: APPROVAL NO. GYZZ S20190045
     Route: 042
     Dates: start: 20250926, end: 20250926
  6. TISLELIZUMAB [Suspect]
     Active Substance: TISLELIZUMAB
     Indication: Radioimmunotherapy
  7. SODIUM CHLORIDE [Concomitant]
     Active Substance: SODIUM CHLORIDE
     Indication: Medication dilution
     Dosage: APPROVAL NO. GYZZ H33020483, 100ML OF 0.9% SODIUM CHLORIDE
     Route: 042
     Dates: start: 20250926, end: 20250926
  8. SODIUM CHLORIDE [Concomitant]
     Active Substance: SODIUM CHLORIDE
     Dosage: APPROVAL NO. GYZZ H33020484, 250ML OF 0.9% SODIUM CHLORIDE INJECTION
     Route: 042
     Dates: start: 20250926, end: 20250926

REACTIONS (2)
  - Myelosuppression [Recovering/Resolving]
  - Off label use [Unknown]

NARRATIVE: CASE EVENT DATE: 20250926
